FAERS Safety Report 5583189-0 (Version None)
Quarter: 2008Q1

REPORT INFORMATION
  Report Type: 
  Country: None (occurrence: None)
  Receive Date: 20080103
  Receipt Date: 20080103
  Transmission Date: 20080703
  Serious: Yes (Hospitalization)
  Sender: FDA-Public Use
  Company Number: None

PATIENT
  Age: 73 Year
  Sex: Female

DRUGS (2)
  1. WARFARIN SODIUM [Suspect]
     Indication: PULMONARY EMBOLISM
     Dosage: 7.5MG  DAILY  PO  (DURATION: ^MONTHS^)
     Route: 048
  2. ASPIRIN [Suspect]
     Indication: PULMONARY EMBOLISM
     Dosage: 81MG DAILY PO   (DURATION: ^MONTHS^)
     Route: 048

REACTIONS (6)
  - ANAEMIA [None]
  - FALL [None]
  - GASTROINTESTINAL ARTERIOVENOUS MALFORMATION [None]
  - GASTROINTESTINAL HAEMORRHAGE [None]
  - INTERNATIONAL NORMALISED RATIO INCREASED [None]
  - SYNCOPE [None]
